FAERS Safety Report 24126767 (Version 1)
Quarter: 2024Q3

REPORT INFORMATION
  Report Type: Spontaneous
  Country: CN (occurrence: CN)
  Receive Date: 20240723
  Receipt Date: 20240723
  Transmission Date: 20241016
  Serious: Yes (Other)
  Sender: BAYER
  Company Number: CN-BAYER-2024A106371

PATIENT
  Age: 79 Year
  Sex: Female

DRUGS (3)
  1. ULTRAVIST [Suspect]
     Active Substance: IOPROMIDE
     Indication: Angiogram cerebral
     Dosage: 200 ML, ONCE
     Route: 042
     Dates: start: 20240702, end: 20240702
  2. ULTRAVIST [Suspect]
     Active Substance: IOPROMIDE
     Indication: Cerebral infarction
  3. ULTRAVIST [Suspect]
     Active Substance: IOPROMIDE
     Indication: Cerebral artery stenosis

REACTIONS (2)
  - Contrast media reaction [Recovering/Resolving]
  - Hallucination, visual [Recovering/Resolving]

NARRATIVE: CASE EVENT DATE: 20240702
